FAERS Safety Report 14680254 (Version 3)
Quarter: 2018Q2

REPORT INFORMATION
  Report Type: Spontaneous
  Country: AU (occurrence: AU)
  Receive Date: 20180326
  Receipt Date: 20180413
  Transmission Date: 20180711
  Serious: Yes (Other)
  Sender: FDA-Public Use
  Company Number: AU-BAYER-2018-058607

PATIENT
  Age: 59 Year
  Sex: Male

DRUGS (10)
  1. ENALAPRIL [ENALAPRIL] [Concomitant]
     Active Substance: ENALAPRIL
  2. ASPIRIN. [Concomitant]
     Active Substance: ASPIRIN
  3. NEXAVAR [Suspect]
     Active Substance: SORAFENIB
     Indication: HEPATOCELLULAR CARCINOMA
     Dosage: 400 MG, BID
     Route: 048
     Dates: start: 20171221
  4. TACROLIMUS. [Concomitant]
     Active Substance: TACROLIMUS
  5. NEXAVAR [Suspect]
     Active Substance: SORAFENIB
     Indication: HEPATOCELLULAR CARCINOMA
     Dosage: 200 MG, BID
     Route: 048
     Dates: start: 20180112, end: 201801
  6. CELLCEPT [Concomitant]
     Active Substance: MYCOPHENOLATE MOFETIL\MYCOPHENOLATE MOFETIL HYDROCHLORIDE
     Dosage: 500MG
  7. NEXAVAR [Suspect]
     Active Substance: SORAFENIB
     Indication: HEPATOCELLULAR CARCINOMA
     Dosage: INCREASED DOSE
     Route: 048
     Dates: start: 20180125, end: 2018
  8. NEXAVAR [Suspect]
     Active Substance: SORAFENIB
     Indication: HEPATOCELLULAR CARCINOMA
     Dosage: 200 MG, BID
     Route: 048
  9. PREDNISONE. [Concomitant]
     Active Substance: PREDNISONE
     Dosage: 7.5MG
  10. PANTOPRAZOLE [Concomitant]
     Active Substance: PANTOPRAZOLE

REACTIONS (6)
  - Lethargy [None]
  - Diarrhoea [None]
  - Hepatic enzyme increased [None]
  - Hypertension [None]
  - Hepatocellular carcinoma [None]
  - Abdominal discomfort [None]

NARRATIVE: CASE EVENT DATE: 201802
